FAERS Safety Report 21125705 (Version 1)
Quarter: 2022Q3

REPORT INFORMATION
  Report Type: Spontaneous
  Country: JP (occurrence: JP)
  Receive Date: 20220725
  Receipt Date: 20220725
  Transmission Date: 20221027
  Serious: Yes (Other)
  Sender: FDA-Public Use
  Company Number: JP-PFIZER INC-PV202200027951

PATIENT
  Sex: Male

DRUGS (2)
  1. INLYTA [Suspect]
     Active Substance: AXITINIB
     Indication: Renal cancer recurrent
     Dosage: UNK
     Route: 048
     Dates: start: 202102
  2. BAVENCIO [Suspect]
     Active Substance: AVELUMAB
     Indication: Renal cancer recurrent
     Dosage: UNK
     Route: 041
     Dates: start: 202102

REACTIONS (2)
  - Adrenal insufficiency [Recovered/Resolved]
  - Palmar-plantar erythrodysaesthesia syndrome [Recovered/Resolved]
